FAERS Safety Report 7740679-X (Version None)
Quarter: 2011Q3

REPORT INFORMATION
  Report Type: 
  Country: None (occurrence: None)
  Receive Date: 20110909
  Receipt Date: 20110830
  Transmission Date: 20111222
  Serious: Yes (Hospitalization, Other)
  Sender: FDA-Public Use
  Company Number: JP-JNJFOC-20110900527

PATIENT
  Age: 69 Year
  Sex: Male

DRUGS (8)
  1. REMICADE [Suspect]
     Route: 042
     Dates: start: 20110222
  2. ISONIAZID [Concomitant]
     Route: 065
  3. REMICADE [Suspect]
     Dosage: 5TH DOSE
     Route: 042
     Dates: start: 20110830, end: 20110830
  4. POLARAMINE [Concomitant]
     Route: 065
  5. PREDNISOLONE [Concomitant]
     Route: 065
  6. METHOTREXATE [Concomitant]
     Route: 048
  7. REMICADE [Suspect]
     Indication: RHEUMATOID ARTHRITIS
     Route: 042
  8. FOLIC ACID [Concomitant]
     Route: 065

REACTIONS (3)
  - CONVULSION [None]
  - INFUSION RELATED REACTION [None]
  - CEREBRAL INFARCTION [None]
